FAERS Safety Report 6203403-8 (Version None)
Quarter: 2009Q2

REPORT INFORMATION
  Report Type: 
  Country: None (occurrence: None)
  Receive Date: 20090527
  Receipt Date: 20090514
  Transmission Date: 20091009
  Serious: Yes (Death, Hospitalization)
  Sender: FDA-Public Use
  Company Number: BR-AMGEN-US348222

PATIENT
  Age: 51 Year
  Sex: Female

DRUGS (4)
  1. ENBREL [Suspect]
     Indication: PSORIASIS
     Route: 058
  2. INSULIN [Concomitant]
     Indication: TYPE 2 DIABETES MELLITUS
     Dosage: VARIED AMOUNT (2-8 UNITS) BASED ON GLUCOSE LEVELS
     Route: 065
  3. ISOPHANE INSULIN [Concomitant]
     Indication: TYPE 2 DIABETES MELLITUS
     Dosage: 50 UNITS
     Route: 065
  4. ISOPHANE INSULIN [Concomitant]
     Dosage: 40 UNITS
     Route: 065

REACTIONS (6)
  - CONDITION AGGRAVATED [None]
  - HYPOGLYCAEMIA [None]
  - PUSTULAR PSORIASIS [None]
  - SEPTIC SHOCK [None]
  - SOFT TISSUE INFECTION [None]
  - UROSEPSIS [None]
